FAERS Safety Report 10494217 (Version 1)
Quarter: 2014Q4

REPORT INFORMATION
  Report Type: Spontaneous
  Country: US (occurrence: None)
  Receive Date: 20141002
  Receipt Date: 20141002
  Transmission Date: 20150528
  Serious: No
  Sender: FDA-Public Use
  Company Number: None

PATIENT
  Sex: Female

DRUGS (1)
  1. FORTEO [Suspect]
     Active Substance: TERIPARATIDE
     Dosage: 20 MCG, DAILY, SUBCUTANEOUSLY
     Route: 058
     Dates: start: 20140114, end: 20140930

REACTIONS (1)
  - Alopecia [None]
